FAERS Safety Report 4716992-7 (Version None)
Quarter: 2005Q3

REPORT INFORMATION
  Report Type: 
  Country: None (occurrence: None)
  Receive Date: 20050715
  Receipt Date: 20050712
  Transmission Date: 20060218
  Serious: Yes (Hospitalization)
  Sender: FDA-Public Use
  Company Number: HQWYE015414APR05

PATIENT
  Age: 49 Year
  Sex: Male

DRUGS (10)
  1. RAPAMUNE [Suspect]
     Indication: PROPHYLAXIS AGAINST TRANSPLANT REJECTION
     Dosage: 6 MG 1X PER 1 DAY, 2 MG 1X PER 1 DAY, 4 MG 1X PER 1 DAY, 4 MG 1X PER 1 DAY
     Route: 048
     Dates: start: 20050307, end: 20050307
  2. RAPAMUNE [Suspect]
     Indication: PROPHYLAXIS AGAINST TRANSPLANT REJECTION
     Dosage: 6 MG 1X PER 1 DAY, 2 MG 1X PER 1 DAY, 4 MG 1X PER 1 DAY, 4 MG 1X PER 1 DAY
     Route: 048
     Dates: start: 20050308, end: 20050322
  3. RAPAMUNE [Suspect]
     Indication: PROPHYLAXIS AGAINST TRANSPLANT REJECTION
     Dosage: 6 MG 1X PER 1 DAY, 2 MG 1X PER 1 DAY, 4 MG 1X PER 1 DAY, 4 MG 1X PER 1 DAY
     Route: 048
     Dates: start: 20050323, end: 20050428
  4. RAPAMUNE [Suspect]
     Indication: PROPHYLAXIS AGAINST TRANSPLANT REJECTION
     Dosage: 6 MG 1X PER 1 DAY, 2 MG 1X PER 1 DAY, 4 MG 1X PER 1 DAY, 4 MG 1X PER 1 DAY
     Route: 048
     Dates: start: 20050502
  5. CYCLOSPORINE [Concomitant]
  6. PREDNISONE [Concomitant]
  7. NIFEDIPINE [Concomitant]
  8. SULFAMETHOXAZOLE + TRIMETHOPRIM [Concomitant]
  9. OMEPRAZOLE [Concomitant]
  10. ASPIRIN [Concomitant]

REACTIONS (9)
  - BACTERIA BLOOD IDENTIFIED [None]
  - COMPLICATIONS OF TRANSPLANTED KIDNEY [None]
  - HAEMATOCRIT DECREASED [None]
  - HAEMOGLOBIN DECREASED [None]
  - PLATELET COUNT DECREASED [None]
  - PNEUMONIA ESCHERICHIA [None]
  - RENAL IMPAIRMENT [None]
  - RENAL INTERSTITIAL FIBROSIS [None]
  - WHITE BLOOD CELL COUNT DECREASED [None]
